FAERS Safety Report 8122963-3 (Version None)
Quarter: 2012Q1

REPORT INFORMATION
  Report Type: 
  Country: None (occurrence: None)
  Receive Date: 20120208
  Receipt Date: 20120201
  Transmission Date: 20120608
  Serious: Yes (Other)
  Sender: FDA-Public Use
  Company Number: FR-ABBOTT-12P-056-0900777-00

PATIENT
  Sex: Male

DRUGS (2)
  1. MESALAMINE [Suspect]
     Indication: ENTEROCOLITIS HAEMORRHAGIC
     Route: 054
     Dates: start: 20110101
  2. HUMIRA [Suspect]
     Indication: ANKYLOSING SPONDYLITIS
     Route: 058

REACTIONS (3)
  - THROMBOCYTOPENIA [None]
  - NEUTROPENIA [None]
  - MYELODYSPLASTIC SYNDROME [None]
